FAERS Safety Report 26147447 (Version 1)
Quarter: 2025Q4

REPORT INFORMATION
  Report Type: Report from Study
  Country: US (occurrence: None)
  Receive Date: 20251211
  Receipt Date: 20251211
  Transmission Date: 20260119
  Serious: Yes (Other)
  Sender: UCB
  Company Number: US-UCBSA-2025028304

PATIENT
  Age: 26 Year
  Weight: 52.2 kg

DRUGS (9)
  1. FENFLURAMINE [Suspect]
     Active Substance: FENFLURAMINE
     Indication: Lennox-Gastaut syndrome
     Dosage: 2.4 MILLILITER, 2X/DAY (BID)
  2. FENFLURAMINE [Suspect]
     Active Substance: FENFLURAMINE
     Dosage: 21.12 MILLIGRAM PER DAY
  3. FENFLURAMINE [Suspect]
     Active Substance: FENFLURAMINE
     Dosage: 4.8 MILLILITER, 2X/DAY (BID)
  4. LACOSAMIDE [Concomitant]
     Active Substance: LACOSAMIDE
     Indication: Epilepsy
     Dosage: 300 MILLIGRAM, 2X/DAY (BID)
  5. CLORAZEPATE DIPOTASSIUM [Concomitant]
     Active Substance: CLORAZEPATE DIPOTASSIUM
     Indication: Epilepsy
     Dosage: 7.5 MILLIGRAM
  6. CLONAZEPAM [Concomitant]
     Active Substance: CLONAZEPAM
     Indication: Epilepsy
     Dosage: 0.5 MILLIGRAM, ONCE IN THE EVENING
  7. CENOBAMATE [Concomitant]
     Active Substance: CENOBAMATE
     Indication: Epilepsy
     Dosage: 7 ML IN THE MORNING, 4 ML IN THE LUNCH TIME, AND 13 ML IN THE EVENING
  8. PHENYTOIN [Concomitant]
     Active Substance: PHENYTOIN
     Indication: Epilepsy
     Dosage: 100 MILLIGRAM, 2X/DAY (BID)
  9. CLARADIN [ACETYLSALICYLIC ACID] [Concomitant]
     Indication: Hypersensitivity
     Dosage: 10 MILLIGRAM

REACTIONS (6)
  - Seizure [Unknown]
  - Lower respiratory tract infection [Unknown]
  - Bronchitis [Recovered/Resolved]
  - Ear infection [Unknown]
  - Hypersomnia [Unknown]
  - Nasopharyngitis [Recovered/Resolved]
